FAERS Safety Report 6338400-5 (Version None)
Quarter: 2009Q3

REPORT INFORMATION
  Report Type: 
  Country: None (occurrence: None)
  Receive Date: 20090901
  Receipt Date: 20090818
  Transmission Date: 20100115
  Serious: Yes (Hospitalization, Other)
  Sender: FDA-Public Use
  Company Number: CERZ-1000884

PATIENT
  Age: 55 Year
  Sex: Male
  Weight: 75 kg

DRUGS (13)
  1. CEREZYME [Suspect]
     Indication: GAUCHER'S DISEASE
     Dosage: 2000 U, QW, INTRAVENOUS
     Route: 042
  2. MS CONTIN [Concomitant]
  3. ZANTAC 150 [Concomitant]
  4. SPIRONOLACTONE W (HYDROCHLOROTHIAZIDE, SPIRONOLACTONE) [Concomitant]
  5. DIAZEPAM [Concomitant]
  6. AMLODIPINE [Concomitant]
  7. EPOGEN [Concomitant]
  8. MORPHINE SULFATE [Concomitant]
  9. MIRALAX [Concomitant]
  10. SEVELAMER (SEVELAMER) [Concomitant]
  11. RANITIDINE HCL [Concomitant]
  12. COLACE (DOCUSATE SODIUM) [Concomitant]
  13. BENADRYL [Concomitant]

REACTIONS (5)
  - HAEMODIALYSIS [None]
  - HEPATITIS C [None]
  - RENAL FAILURE ACUTE [None]
  - STAPHYLOCOCCAL BACTERAEMIA [None]
  - URINARY TRACT INFECTION [None]
